FAERS Safety Report 6315855-3 (Version None)
Quarter: 2009Q3

REPORT INFORMATION
  Report Type: 
  Country: None (occurrence: None)
  Receive Date: 20090820
  Receipt Date: 20090813
  Transmission Date: 20100115
  Serious: Yes (Death, Hospitalization)
  Sender: FDA-Public Use
  Company Number: US-BAXTER-2009BH012818

PATIENT
  Age: 73 Year
  Sex: Male
  Weight: 81 kg

DRUGS (19)
  1. GAMMAGARD LIQUID [Suspect]
     Indication: DEMENTIA ALZHEIMER'S TYPE
     Route: 042
     Dates: start: 20090812, end: 20090812
  2. GAMMAGARD LIQUID [Suspect]
     Route: 042
     Dates: start: 20090729
  3. GAMMAGARD LIQUID [Suspect]
     Route: 042
     Dates: start: 20090715
  4. ARICEPT [Concomitant]
     Indication: DEMENTIA ALZHEIMER'S TYPE
     Route: 048
     Dates: start: 20080709
  5. NAMENDA [Concomitant]
     Indication: DEMENTIA ALZHEIMER'S TYPE
     Route: 048
     Dates: start: 20080829
  6. PROPRANOLOL [Concomitant]
     Indication: TREMOR
     Route: 048
     Dates: start: 19800101
  7. TRIAMTERENE AND HYDROCHLOROTHIAZIDE [Concomitant]
     Indication: MENIERE'S DISEASE
     Route: 048
     Dates: start: 19910101
  8. KLOR-CON [Concomitant]
     Indication: MINERAL SUPPLEMENTATION
     Route: 048
     Dates: start: 19910101
  9. OMEPRAZOLE [Concomitant]
     Indication: GASTROOESOPHAGEAL REFLUX DISEASE
     Route: 048
     Dates: start: 20060101
  10. FLUTICASONE PROPIONATE [Concomitant]
     Indication: HYPERSENSITIVITY
     Route: 045
     Dates: start: 20020101
  11. ASPIRIN [Concomitant]
     Indication: ROUTINE HEALTH MAINTENANCE
     Route: 048
     Dates: start: 20050101
  12. MULTI-VITAMINS [Concomitant]
     Indication: ROUTINE HEALTH MAINTENANCE
     Route: 048
     Dates: start: 19980101
  13. CITRACAL PLUS [Concomitant]
     Indication: ROUTINE HEALTH MAINTENANCE
     Route: 048
     Dates: start: 20050101
  14. FOLIC ACID W/VITAMIN B NOS [Concomitant]
     Indication: ROUTINE HEALTH MAINTENANCE
     Route: 048
     Dates: start: 20030101
  15. UREA [Concomitant]
     Indication: HYPERKERATOSIS
     Route: 061
     Dates: start: 20050101
  16. FISH OIL [Concomitant]
     Indication: ROUTINE HEALTH MAINTENANCE
     Route: 061
     Dates: start: 20080101
  17. NASAL SALINE [Concomitant]
     Indication: HYPERSENSITIVITY
     Dates: start: 20030101
  18. AZITHROMYCIN [Concomitant]
     Indication: SINUSITIS
     Route: 048
     Dates: start: 20090429, end: 20090501
  19. LEVAQUIN [Concomitant]
     Indication: SINUSITIS
     Route: 048
     Dates: start: 20090502, end: 20090509

REACTIONS (5)
  - ARTERIOSCLEROSIS [None]
  - BRAIN HERNIATION [None]
  - CAROTID ARTERY OCCLUSION [None]
  - CEREBRAL HAEMORRHAGE [None]
  - CEREBRAL THROMBOSIS [None]
